FAERS Safety Report 5396865-X (Version None)
Quarter: 2007Q3

REPORT INFORMATION
  Report Type: 
  Country: None (occurrence: None)
  Receive Date: 20070725
  Receipt Date: 20070531
  Transmission Date: 20080115
  Serious: Yes (Other)
  Sender: FDA-Public Use
  Company Number: US-PURDUE-USA_2007_0027722

PATIENT
  Age: 40 Year
  Sex: Female
  Weight: 118 kg

DRUGS (11)
  1. OXYCONTIN [Suspect]
     Indication: BACK PAIN
     Dosage: 20 MG, BID
     Dates: start: 19980602, end: 19981020
  2. HUMULIN N [Concomitant]
     Dosage: 60 UNIT, DAILY
  3. HUMULIN R [Concomitant]
     Dosage: UNK, PRN
  4. LIPITOR [Concomitant]
     Dosage: 20 UNK, DAILY
  5. ZANTAC 150 [Concomitant]
     Dosage: 150 MG, DAILY
  6. TRAZODONE HCL [Concomitant]
     Dosage: 150 MG, NOCTE
  7. AVAPRO [Concomitant]
     Dosage: 150 MG, DAILY
  8. FLOVENT [Concomitant]
     Dosage: 2 PUFF, DAILY
  9. SEREVENT [Concomitant]
     Dosage: 2 PUFF, DAILY
  10. ALBUTEROL [Concomitant]
     Dosage: UNK, PRN
  11. CLARITIN-D [Concomitant]
     Dosage: 1 TABLET, DAILY

REACTIONS (15)
  - ANOREXIA [None]
  - ARTHRALGIA [None]
  - BACK PAIN [None]
  - DRUG DEPENDENCE [None]
  - DRUG EFFECT DECREASED [None]
  - DRUG WITHDRAWAL SYNDROME [None]
  - HYPERHIDROSIS [None]
  - INSOMNIA [None]
  - MYALGIA [None]
  - PAIN [None]
  - PAIN IN EXTREMITY [None]
  - RENAL FAILURE [None]
  - RESTLESS LEGS SYNDROME [None]
  - TREMOR [None]
  - VOMITING [None]
